FAERS Safety Report 8137403-8 (Version None)
Quarter: 2012Q1

REPORT INFORMATION
  Report Type: 
  Country: None (occurrence: None)
  Receive Date: 20120209
  Receipt Date: 20120130
  Transmission Date: 20120608
  Serious: Yes (Hospitalization)
  Sender: FDA-Public Use
  Company Number: B0779588A

PATIENT
  Age: 29 Year
  Sex: Female

DRUGS (3)
  1. PAROXETINE HYDROCHLORIDE [Suspect]
     Indication: DEPRESSION
     Dosage: ORAL
     Route: 048
  2. FLUVOXAMINE MALEATE [Concomitant]
  3. ALPRAZOLAM [Concomitant]

REACTIONS (7)
  - INSOMNIA [None]
  - EOSINOPHILIA [None]
  - LYMPHOCYTE PERCENTAGE DECREASED [None]
  - WHITE BLOOD CELL COUNT INCREASED [None]
  - NEUTROPHIL PERCENTAGE DECREASED [None]
  - ARTHRALGIA [None]
  - TREMOR [None]
